FAERS Safety Report 6881407-X (Version None)
Quarter: 2010Q3

REPORT INFORMATION
  Report Type: 
  Country: None (occurrence: None)
  Receive Date: 20100728
  Receipt Date: 20100329
  Transmission Date: 20110219
  Serious: No
  Sender: FDA-Public Use
  Company Number: US-MYLANLABS-2010S1005443

PATIENT
  Age: 46 Year
  Sex: Female
  Weight: 48.99 kg

DRUGS (5)
  1. TRAMADOL HYDROCHLORIDE [Suspect]
     Indication: BACK PAIN
     Route: 048
     Dates: start: 20060101, end: 20100322
  2. WELLBUTRIN [Concomitant]
  3. TRAZODONE [Concomitant]
  4. EFFEXOR [Concomitant]
  5. SYNTHROID [Concomitant]

REACTIONS (1)
  - DRUG LEVEL ABOVE THERAPEUTIC [None]
